FAERS Safety Report 15539875 (Version 2)
Quarter: 2018Q4

REPORT INFORMATION
  Report Type: Spontaneous
  Country: US (occurrence: US)
  Receive Date: 20181023
  Receipt Date: 20181121
  Transmission Date: 20190205
  Serious: Yes (Hospitalization, Other)
  Sender: FDA-Public Use
  Company Number: US-CIPLA LTD.-2018US21661

PATIENT

DRUGS (5)
  1. LORAZEPAM. [Suspect]
     Active Substance: LORAZEPAM
     Indication: NEUROTOXICITY
     Dosage: UNK
     Route: 065
  2. LEVOFLOXACIN. [Suspect]
     Active Substance: LEVOFLOXACIN
     Indication: URINARY TRACT INFECTION BACTERIAL
     Dosage: 750 MG, (ONE DOSE)
     Route: 048
  3. BENZTROPINE. [Suspect]
     Active Substance: BENZTROPINE
     Indication: NEUROTOXICITY
     Dosage: UNK
     Route: 065
  4. LEVOFLOXACIN. [Suspect]
     Active Substance: LEVOFLOXACIN
     Dosage: 750 MG, 4 DAYS LATER
     Route: 042
  5. QUETIAPINE. [Concomitant]
     Active Substance: QUETIAPINE
     Indication: NEUROTOXICITY
     Dosage: 50 MG, DAILY
     Route: 048

REACTIONS (4)
  - Myoclonus [Recovered/Resolved]
  - Muscle twitching [Recovered/Resolved]
  - Neurotoxicity [Recovered/Resolved]
  - Treatment failure [Unknown]
